FAERS Safety Report 13290296 (Version 2)
Quarter: 2020Q4

REPORT INFORMATION
  Report Type: Spontaneous
  Country: US (occurrence: US)
  Receive Date: 20170303
  Receipt Date: 20201228
  Transmission Date: 20210113
  Serious: No
  Sender: FDA-Public Use
  Company Number: US-ASTRAZENECA-2017SE22179

PATIENT
  Sex: Female

DRUGS (1)
  1. CRESTOR [Suspect]
     Active Substance: ROSUVASTATIN CALCIUM
     Route: 048

REACTIONS (1)
  - Low density lipoprotein decreased [Unknown]
